APPROVED DRUG PRODUCT: EXTENDED PHENYTOIN SODIUM
Active Ingredient: PHENYTOIN SODIUM
Strength: 100MG EXTENDED
Dosage Form/Route: CAPSULE;ORAL
Application: A040298 | Product #001
Applicant: MYLAN PHARMACEUTICALS INC
Approved: Dec 28, 1998 | RLD: No | RS: No | Type: DISCN